FAERS Safety Report 8464032-9 (Version None)
Quarter: 2012Q2

REPORT INFORMATION
  Report Type: 
  Country: None (occurrence: None)
  Receive Date: 20120323
  Receipt Date: 20111031
  Transmission Date: 20120825
  Serious: Yes (Other)
  Sender: FDA-Public Use
  Company Number: 163-21880-11101048

PATIENT
  Age: 68 Year
  Sex: Female

DRUGS (2)
  1. REVLIMID [Suspect]
     Indication: MULTIPLE MYELOMA
     Dosage: 25 MG, DAILY X 14 DAYS, 7 DAYS OFF, PO,  X 14, PO
     Route: 048
     Dates: start: 20110901
  2. REVLIMID [Suspect]
     Indication: MULTIPLE MYELOMA
     Dosage: 25 MG, DAILY X 14 DAYS, 7 DAYS OFF, PO,  X 14, PO
     Route: 048
     Dates: start: 20111001

REACTIONS (3)
  - ASTHENIA [None]
  - RENAL IMPAIRMENT [None]
  - PROTEIN TOTAL ABNORMAL [None]
